FAERS Safety Report 14174383 (Version 4)
Quarter: 2017Q4

REPORT INFORMATION
  Report Type: Spontaneous
  Country: US (occurrence: US)
  Receive Date: 20171109
  Receipt Date: 20171222
  Transmission Date: 20180321
  Serious: No
  Sender: FDA-Public Use
  Company Number: PHEH2017US036281

PATIENT
  Sex: Female

DRUGS (1)
  1. ILEVRO [Suspect]
     Active Substance: NEPAFENAC
     Indication: PRODUCT USED FOR UNKNOWN INDICATION
     Dosage: 1 GTT, QD
     Route: 047
     Dates: start: 20171106

REACTIONS (4)
  - Product colour issue [Unknown]
  - Nervousness [Unknown]
  - Accidental exposure to product [Unknown]
  - Product gel formation [Unknown]
